FAERS Safety Report 9233484 (Version 3)
Quarter: 2013Q3

REPORT INFORMATION
  Report Type: Spontaneous
  Country: US (occurrence: US)
  Receive Date: 20130416
  Receipt Date: 20130812
  Transmission Date: 20140515
  Serious: Yes (Other)
  Sender: FDA-Public Use
  Company Number: US-PFIZER INC-2013117885

PATIENT
  Age: 21 Year
  Sex: Female
  Weight: 55.78 kg

DRUGS (4)
  1. CHANTIX [Suspect]
     Indication: SMOKING CESSATION THERAPY
     Dosage: 0.5 MG, 2X/DAY
     Dates: start: 201303, end: 201303
  2. CHANTIX [Suspect]
     Dosage: UNK
     Dates: start: 2013, end: 2013
  3. ABILIFY [Concomitant]
     Indication: ANXIETY
     Dosage: 15 MG, DAILY
  4. ABILIFY [Concomitant]
     Indication: DEPRESSION

REACTIONS (5)
  - Aphagia [Unknown]
  - Drug ineffective [Unknown]
  - Feeling abnormal [Unknown]
  - Nausea [Unknown]
  - Malaise [Unknown]
